FAERS Safety Report 8812269 (Version 1)
Quarter: 2012Q4

REPORT INFORMATION
  Report Type: Spontaneous
  Country: DE (occurrence: None)
  Receive Date: 20120925
  Receipt Date: 20120925
  Transmission Date: 20130627
  Serious: Yes (Hospitalization)
  Sender: FDA-Public Use
  Company Number: GER/GER/12/0025929

PATIENT
  Age: 87 Year
  Sex: Female

DRUGS (5)
  1. RISPERIDONE [Suspect]
     Indication: CONFUSIONAL STATE
     Route: 048
     Dates: start: 201205, end: 20120509
  2. METAMIZOL [Suspect]
     Indication: BACK PAIN
     Route: 048
     Dates: start: 20120502, end: 20120509
  3. AMLODIPINE (AMLODIPINE) [Concomitant]
  4. LORAZEPAM [Concomitant]
  5. PANTOPRAZOLE (PANTOPRAZOLE SODIUM SESQUIHYDRATE) [Concomitant]

REACTIONS (1)
  - Pancytopenia [None]
